FAERS Safety Report 15405485 (Version 1)
Quarter: 2018Q3

REPORT INFORMATION
  Report Type: Spontaneous
  Country: HU (occurrence: HU)
  Receive Date: 20180920
  Receipt Date: 20180920
  Transmission Date: 20181010
  Serious: Yes (Other)
  Sender: FDA-Public Use
  Company Number: HU-009507513-1809HUN007437

PATIENT
  Age: 72 Year
  Sex: Female

DRUGS (1)
  1. KEYTRUDA [Suspect]
     Active Substance: PEMBROLIZUMAB
     Indication: TRANSITIONAL CELL CARCINOMA
     Dosage: UNK
     Dates: start: 20180301

REACTIONS (7)
  - Gait disturbance [Recovered/Resolved]
  - Ataxia [Recovered/Resolved]
  - Transurethral bladder resection [Unknown]
  - Hypoaesthesia [Recovered/Resolved]
  - Areflexia [Recovered/Resolved]
  - Paraesthesia [Recovered/Resolved]
  - Nephrostomy [Unknown]

NARRATIVE: CASE EVENT DATE: 2018
